FAERS Safety Report 10313236 (Version 1)
Quarter: 2014Q3

REPORT INFORMATION
  Report Type: Spontaneous
  Country: US (occurrence: None)
  Receive Date: 20140716
  Receipt Date: 20140716
  Transmission Date: 20150326
  Serious: Yes (Death)
  Sender: FDA-Public Use
  Company Number: 2014-US-008528

PATIENT
  Age: 50 Year
  Sex: Male

DRUGS (13)
  1. NORCO (HYDROCODONE BITARTRATE, PARACETAMOL) [Concomitant]
  2. AMITRIPTYLINE HCL (AMITRIPTYLINE HYDROCHLORIDE) [Concomitant]
  3. XANAX [Concomitant]
     Active Substance: ALPRAZOLAM
  4. SIMVASTATIN (SIMVASTATIN) [Concomitant]
     Active Substance: SIMVASTATIN
  5. GABAPENTIN (GABAPENTIN) [Concomitant]
     Active Substance: GABAPENTIN
  6. XYREM [Suspect]
     Active Substance: SODIUM OXYBATE
     Indication: NARCOLEPSY
     Route: 048
     Dates: start: 201403, end: 201404
  7. MINOCYCLINE HCL (MINOCYCLINE HYDROCHLORIDE) [Concomitant]
  8. FENOFIBRATE (FENOFIBRATE) [Concomitant]
  9. PROVIGIL [Concomitant]
     Active Substance: MODAFINIL
  10. LOSARTAN POTASSIUM (LOSARTAN POTASSIUM) [Concomitant]
     Active Substance: LOSARTAN POTASSIUM
  11. OMEPRAZOLE (OMEPRAZOLE) [Concomitant]
     Active Substance: OMEPRAZOLE
  12. HYDROXYZINE HCL 9HYDROXYZINE HYDROCHLORIDE) [Concomitant]
  13. PLAVIX (CLOPIDOGREL BISULFATE) [Concomitant]

REACTIONS (1)
  - Death [None]

NARRATIVE: CASE EVENT DATE: 20140516
